FAERS Safety Report 19488526 (Version 4)
Quarter: 2023Q1

REPORT INFORMATION
  Report Type: Report from Study
  Country: BE (occurrence: BE)
  Receive Date: 20210702
  Receipt Date: 20230303
  Transmission Date: 20230418
  Serious: Yes (Hospitalization)
  Sender: FDA-Public Use
  Company Number: BE-JNJFOC-20210661871

PATIENT
  Age: 73 Year
  Sex: Female
  Weight: 90.6 kg

DRUGS (13)
  1. DARATUMUMAB [Suspect]
     Active Substance: DARATUMUMAB
     Indication: Plasma cell myeloma
     Dosage: CYCLICAL, MOST RECENT DATE ADMINISTERED WAS ON 18-JUN-2021?MEDICAL KIT 838962
     Route: 058
     Dates: start: 20160812
  2. DEXAMETHASONE [Suspect]
     Active Substance: DEXAMETHASONE
     Indication: Plasma cell myeloma
     Dosage: MOST RECENT DATE ADMINISTERED WAS ON 18-JUN-2021
     Route: 048
     Dates: start: 20160812
  3. LENALIDOMIDE [Concomitant]
     Active Substance: LENALIDOMIDE
     Indication: Plasma cell myeloma
     Route: 048
     Dates: start: 20160812, end: 20200806
  4. ALIZAPRIDE [Concomitant]
     Active Substance: ALIZAPRIDE
     Indication: Nausea
     Route: 048
  5. OTILONIUM [Concomitant]
     Active Substance: OTILONIUM
     Indication: Diarrhoea
     Route: 048
     Dates: start: 20170127
  6. GELATINE POLYSUCCINATE [Concomitant]
     Indication: Diarrhoea
     Route: 048
     Dates: start: 202006
  7. BUMETANIDE [Concomitant]
     Active Substance: BUMETANIDE
     Indication: Hypervolaemia
     Route: 048
     Dates: start: 20200717
  8. BUMETANIDE [Concomitant]
     Active Substance: BUMETANIDE
     Indication: Cardiac failure
  9. TINZAPARIN SODIUM [Concomitant]
     Active Substance: TINZAPARIN SODIUM
     Indication: Deep vein thrombosis
     Dosage: DOSE 14000, UNITS OTHER
     Route: 058
     Dates: start: 20200814
  10. BUPRENORPHINE [Concomitant]
     Active Substance: BUPRENORPHINE
     Indication: Lumbar spinal stenosis
     Dosage: DOSE 52.5, UNITS OTHER
     Route: 061
     Dates: start: 20201009
  11. BEFACT [CYANOCOBALAMIN;PYRIDOXINE;THIAMINE] [Concomitant]
     Indication: Vitamin B12 deficiency
     Dosage: 1 TABLET
     Route: 048
     Dates: start: 20201204
  12. FERROUS SULFATE ANHYDROUS [Concomitant]
     Active Substance: FERROUS SULFATE ANHYDROUS
     Indication: Anaemia
     Route: 048
     Dates: start: 20201226
  13. APIXABAN [Concomitant]
     Active Substance: APIXABAN
     Indication: Anticoagulant therapy

REACTIONS (1)
  - Cholangitis [Recovered/Resolved]

NARRATIVE: CASE EVENT DATE: 20210622
